FAERS Safety Report 6661073-9 (Version None)
Quarter: 2010Q1

REPORT INFORMATION
  Report Type: 
  Country: None (occurrence: None)
  Receive Date: 20100331
  Receipt Date: 20100326
  Transmission Date: 20100710
  Serious: Yes (Other)
  Sender: FDA-Public Use
  Company Number: US-JNJCH-2010007557

PATIENT
  Sex: Female

DRUGS (2)
  1. ZYRTEC [Suspect]
     Indication: DRUG USE FOR UNKNOWN INDICATION
     Route: 048
  2. VASOTEC [Concomitant]
     Indication: HYPERTENSION
     Dosage: TEXT:30MG QD
     Route: 065

REACTIONS (1)
  - BLOOD PRESSURE INCREASED [None]
